FAERS Safety Report 4371946-8 (Version None)
Quarter: 2004Q2

REPORT INFORMATION
  Report Type: 
  Country: None (occurrence: None)
  Receive Date: 20040602
  Receipt Date: 20031001
  Transmission Date: 20050107
  Serious: Yes (Hospitalization)
  Sender: FDA-Public Use
  Company Number: US-JNJFOC-20040105620

PATIENT
  Age: 37 Year
  Sex: Female
  Weight: 130.1823 kg

DRUGS (10)
  1. PROPULSID [Suspect]
     Indication: GASTROOESOPHAGEAL REFLUX DISEASE
     Dosage: 10 MG
     Dates: start: 19991202
  2. CEPHALEXIN [Concomitant]
  3. PRILOSEC [Concomitant]
  4. PARAFON FORTE [Concomitant]
  5. INDERAL LA [Concomitant]
  6. TYLENOL W/CODEINE (PANADEINE CO) [Concomitant]
  7. TRAZODONE HCL [Concomitant]
  8. CYTOTEC [Concomitant]
  9. CHROMAGEN [Concomitant]
  10. DILACOR XR (DILTIAZEM HYDROCHLORIDE) [Concomitant]

REACTIONS (3)
  - CHEST PAIN [None]
  - PALPITATIONS [None]
  - SYNCOPE [None]
